FAERS Safety Report 7462950-1 (Version None)
Quarter: 2011Q2

REPORT INFORMATION
  Report Type: 
  Country: None (occurrence: None)
  Receive Date: 20110506
  Receipt Date: 20101229
  Transmission Date: 20111010
  Serious: Yes (Hospitalization, Other)
  Sender: FDA-Public Use
  Company Number: US-BAYER-201037958NA

PATIENT
  Age: 41 Year
  Sex: Female
  Weight: 52 kg

DRUGS (9)
  1. IBUPROFEN [Concomitant]
     Dosage: 600 MG, UNK
     Route: 048
     Dates: start: 20061005
  2. YASMIN [Suspect]
     Indication: CONTRACEPTION
     Dosage: UNK UNK, UNK
     Route: 048
     Dates: start: 20060213, end: 20070201
  3. AMERGE [Concomitant]
     Indication: MIGRAINE
     Dosage: 2.5 MG, UNK
     Route: 048
  4. FLUTICASONE PROPIONATE [Concomitant]
     Dosage: UNK
     Route: 045
     Dates: start: 20080930
  5. CIPROFLOXACIN [Concomitant]
     Dosage: UNK
     Dates: start: 20061004
  6. AZITHROMYCIN [Concomitant]
     Dosage: 250 MG, UNK
     Route: 048
     Dates: start: 20080930
  7. YAZ [Suspect]
     Indication: CONTRACEPTION
     Dosage: UNK
     Dates: start: 20070301, end: 20090301
  8. TRAMADOL [Concomitant]
     Dosage: 37.5 MG, UNK
     Route: 048
     Dates: start: 20061005
  9. CARISOPRODOL [Concomitant]
     Dosage: 350 MG, UNK
     Route: 048
     Dates: start: 20090110

REACTIONS (3)
  - CHOLECYSTITIS CHRONIC [None]
  - NEPHROLITHIASIS [None]
  - FLANK PAIN [None]
